FAERS Safety Report 16331862 (Version 14)
Quarter: 2020Q1

REPORT INFORMATION
  Report Type: Report from Study
  Country: CO (occurrence: CO)
  Receive Date: 20190520
  Receipt Date: 20200320
  Transmission Date: 20200409
  Serious: Yes (Hospitalization)
  Sender: FDA-Public Use
  Company Number: CO-SA-2018SA197552

PATIENT
  Age: 33 Year
  Sex: Female

DRUGS (1)
  1. ALEMTUZUMAB [Suspect]
     Active Substance: ALEMTUZUMAB
     Indication: MULTIPLE SCLEROSIS
     Dosage: 12 MG, QD
     Route: 041
     Dates: start: 20180618, end: 20180620

REACTIONS (12)
  - Leukocyturia [Recovered/Resolved]
  - Bilirubin urine present [Recovered/Resolved]
  - Platelet count decreased [Recovered/Resolved]
  - Blood thyroid stimulating hormone increased [Unknown]
  - Red blood cell sedimentation rate increased [Recovered/Resolved]
  - Red blood cells urine positive [Not Recovered/Not Resolved]
  - Lymphocyte count decreased [Recovered/Resolved]
  - Bacteriuria [Recovered/Resolved]
  - Urine ketone body present [Recovered/Resolved]
  - White blood cell count decreased [Recovered/Resolved]
  - Blood thyroid stimulating hormone decreased [Recovered/Resolved]
  - Neutrophil count decreased [Recovered/Resolved]

NARRATIVE: CASE EVENT DATE: 20180716
